FAERS Safety Report 23382616 (Version 1)
Quarter: 2024Q1

REPORT INFORMATION
  Report Type: Spontaneous
  Country: US (occurrence: US)
  Receive Date: 20240109
  Receipt Date: 20240109
  Transmission Date: 20240410
  Serious: Yes (Hospitalization, Other)
  Sender: FDA-Public Use
  Company Number: US-SCIEGENP-2023SCLIT00857

PATIENT
  Age: 16 Year
  Sex: Female

DRUGS (2)
  1. FLUOXETINE [Suspect]
     Active Substance: FLUOXETINE HYDROCHLORIDE
     Indication: Major depression
     Route: 048
  2. TRAZODONE [Concomitant]
     Active Substance: TRAZODONE HYDROCHLORIDE
     Indication: Major depression
     Route: 065

REACTIONS (13)
  - Intentional overdose [Unknown]
  - Clonus [Recovered/Resolved]
  - Paraesthesia [Unknown]
  - Generalised tonic-clonic seizure [Unknown]
  - Electrocardiogram QT prolonged [Not Recovered/Not Resolved]
  - Dizziness [Unknown]
  - Nausea [Unknown]
  - Vomiting [Unknown]
  - Tachycardia [Unknown]
  - Akathisia [Unknown]
  - Mydriasis [Unknown]
  - Hyperreflexia [Unknown]
  - Hypertonia [Recovered/Resolved]
